FAERS Safety Report 8607926 (Version 3)
Quarter: 2013Q3

REPORT INFORMATION
  Report Type: Spontaneous
  Country: US (occurrence: US)
  Receive Date: 20120611
  Receipt Date: 20130718
  Transmission Date: 20140515
  Serious: Yes (Other)
  Sender: FDA-Public Use
  Company Number: US-PFIZER INC-2012138699

PATIENT
  Age: 66 Year
  Sex: Female
  Weight: 83.9 kg

DRUGS (7)
  1. CELEBREX [Suspect]
     Indication: BONE PAIN
     Dosage: 200 MG, 1X/DAY
     Route: 048
  2. CELEBREX [Suspect]
     Indication: ARTHRITIS
  3. MORPHINE [Concomitant]
     Dosage: 30 MG, 3X/DAY
  4. GABAPENTIN [Concomitant]
     Dosage: 400 MG, 3X/DAY
  5. ARICEPT [Concomitant]
     Dosage: 10 MG, 1X/DAY
  6. CYMBALTA [Concomitant]
     Dosage: 60 MG, 1X/DAY
  7. ASPIRIN [Concomitant]
     Dosage: 81 MG, UNK

REACTIONS (9)
  - Dementia [Unknown]
  - Scoliosis [Unknown]
  - Spinal disorder [Unknown]
  - Bone disorder [Unknown]
  - Surgery [Unknown]
  - Thermal burn [Unknown]
  - Body height decreased [Unknown]
  - Pain [Unknown]
  - Limb injury [Unknown]
